FAERS Safety Report 5533049-6 (Version None)
Quarter: 2007Q4

REPORT INFORMATION
  Report Type: 
  Country: None (occurrence: None)
  Receive Date: 20071204
  Receipt Date: 20071126
  Transmission Date: 20080405
  Serious: Yes (Disabling)
  Sender: FDA-Public Use
  Company Number: JP-SP-2007-00230

PATIENT
  Age: 64 Year
  Sex: Male

DRUGS (1)
  1. IMMUCYST [Suspect]
     Indication: BLADDER TRANSITIONAL CELL CARCINOMA
     Route: 043
     Dates: start: 20061031, end: 20061225

REACTIONS (4)
  - EPIDIDYMITIS TUBERCULOUS [None]
  - INDURATION [None]
  - TESTICULAR PAIN [None]
  - TESTICULAR SWELLING [None]
